FAERS Safety Report 8240344-9 (Version None)
Quarter: 2012Q1

REPORT INFORMATION
  Report Type: 
  Country: None (occurrence: None)
  Receive Date: 20120328
  Receipt Date: 20120113
  Transmission Date: 20120608
  Serious: Yes (Other)
  Sender: FDA-Public Use
  Company Number: PHFR2011GB007493

PATIENT
  Sex: Female

DRUGS (3)
  1. TEGRETOL [Suspect]
     Indication: EPILEPSY
     Dosage: 200 MG, BID
     Route: 048
  2. TEGRETOL [Suspect]
     Dosage: 300 MG, BID
     Route: 048
  3. TEGRETOL [Suspect]
     Dosage: 400 MG, BID
     Route: 048

REACTIONS (3)
  - GINGIVAL SWELLING [None]
  - HYPERPLASIA [None]
  - CONVULSION [None]
